FAERS Safety Report 13944074 (Version 1)
Quarter: 2017Q3

REPORT INFORMATION
  Report Type: Spontaneous
  Country: US (occurrence: US)
  Receive Date: 20170907
  Receipt Date: 20170907
  Transmission Date: 20171128
  Serious: Yes (Other)
  Sender: FDA-Public Use
  Company Number: US-ROCHE-1414557

PATIENT
  Sex: Female

DRUGS (2)
  1. RITUXAN [Suspect]
     Active Substance: RITUXIMAB
     Indication: B-CELL LYMPHOMA
     Route: 065
  2. BENDAMUSTINE [Concomitant]
     Active Substance: BENDAMUSTINE
     Indication: B-CELL LYMPHOMA

REACTIONS (8)
  - Infusion related reaction [Unknown]
  - Urticaria [Unknown]
  - Chills [Recovered/Resolved]
  - Dyspnoea [Unknown]
  - Chest pain [Recovered/Resolved]
  - Hypotension [Unknown]
  - Dizziness [Recovered/Resolved]
  - Rash [Recovered/Resolved]

NARRATIVE: CASE EVENT DATE: 20140527
